FAERS Safety Report 4977527-7 (Version None)
Quarter: 2006Q2

REPORT INFORMATION
  Report Type: 
  Country: None (occurrence: None)
  Receive Date: 20060413
  Receipt Date: 20060331
  Transmission Date: 20061013
  Serious: Yes (Hospitalization)
  Sender: FDA-Public Use
  Company Number: 2006046781

PATIENT
  Age: 43 Year
  Sex: Female

DRUGS (2)
  1. ZYVOX [Suspect]
     Indication: OSTEITIS
     Dosage: 1200 MG (600 MG, 2 IN 1 D), ORAL
     Route: 048
     Dates: start: 20050913, end: 20060118
  2. FLAGYL [Suspect]
     Indication: OSTEITIS
     Dosage: 1500 MG (500 MG, 3 IN 1 D), ORAL
     Route: 048
     Dates: start: 20050913, end: 20060118

REACTIONS (2)
  - IATROGENIC INJURY [None]
  - PERIPHERAL SENSORY NEUROPATHY [None]
